FAERS Safety Report 5679090-4 (Version None)
Quarter: 2008Q1

REPORT INFORMATION
  Report Type: 
  Country: None (occurrence: None)
  Receive Date: 20080325
  Receipt Date: 20080304
  Transmission Date: 20080703
  Serious: Yes (Other)
  Sender: FDA-Public Use
  Company Number: CA-JNJFOC-20080305430

PATIENT
  Age: 56 Year
  Sex: Female

DRUGS (6)
  1. RALIVIA [Suspect]
     Indication: BACK PAIN
     Route: 048
     Dates: start: 20080303, end: 20080304
  2. METFORMIN [Concomitant]
     Route: 065
  3. ENTROPHEN [Concomitant]
     Route: 065
  4. LYRICA [Concomitant]
     Route: 065
  5. LIPITOR [Concomitant]
     Route: 065
  6. VENTOLIN [Concomitant]
     Route: 065

REACTIONS (4)
  - ASTHMA [None]
  - HYPERHIDROSIS [None]
  - INSOMNIA [None]
  - PALPITATIONS [None]
